FAERS Safety Report 12296368 (Version 1)
Quarter: 2016Q2

REPORT INFORMATION
  Report Type: Spontaneous
  Country: US (occurrence: US)
  Receive Date: 20160422
  Receipt Date: 20160422
  Transmission Date: 20160815
  Serious: Yes (Other)
  Sender: FDA-Public Use
  Company Number: US-BEH-2016061429

PATIENT
  Sex: Female
  Weight: 71 kg

DRUGS (22)
  1. EPIPEN [Concomitant]
     Active Substance: EPINEPHRINE
  2. XIFAXAN [Concomitant]
     Active Substance: RIFAXIMIN
  3. DALIRESP [Concomitant]
     Active Substance: ROFLUMILAST
  4. LEVALBUTEROL. [Concomitant]
     Active Substance: LEVALBUTEROL
  5. VITAMIN B12 [Concomitant]
     Active Substance: CYANOCOBALAMIN
  6. ZEMAIRA [Suspect]
     Active Substance: .ALPHA.1-PROTEINASE INHIBITOR HUMAN
     Indication: BACTERAEMIA
     Route: 042
     Dates: start: 20110223
  7. DIPHENHYDRAMINE. [Concomitant]
     Active Substance: DIPHENHYDRAMINE
  8. NORMAL SALINE [Concomitant]
     Active Substance: SODIUM CHLORIDE
  9. LMX [Concomitant]
     Active Substance: LIDOCAINE
  10. OXYGEN. [Concomitant]
     Active Substance: OXYGEN
  11. LEVAQUIN [Concomitant]
     Active Substance: LEVOFLOXACIN
  12. DIGOXIN. [Concomitant]
     Active Substance: DIGOXIN
  13. IPRATROPIUM [Concomitant]
     Active Substance: IPRATROPIUM
  14. SODIUM CHLORIDE. [Concomitant]
     Active Substance: SODIUM CHLORIDE
  15. PANTOPRAZOLE [Concomitant]
     Active Substance: PANTOPRAZOLE SODIUM
  16. PERFOROMIST [Concomitant]
     Active Substance: FORMOTEROL FUMARATE DIHYDRATE
  17. ZEMAIRA [Suspect]
     Active Substance: .ALPHA.1-PROTEINASE INHIBITOR HUMAN
     Indication: COMPLEMENT DEFICIENCY DISEASE
     Route: 042
     Dates: start: 20110223
  18. PREDNISONE. [Concomitant]
     Active Substance: PREDNISONE
  19. BUDESONIDE. [Concomitant]
     Active Substance: BUDESONIDE
  20. CARDIZEM [Concomitant]
     Active Substance: DILTIAZEM HYDROCHLORIDE
  21. SINGULAIR [Concomitant]
     Active Substance: MONTELUKAST SODIUM
  22. XANAX [Concomitant]
     Active Substance: ALPRAZOLAM

REACTIONS (3)
  - Pyrexia [Unknown]
  - Productive cough [Unknown]
  - Respiratory tract infection [Unknown]
